FAERS Safety Report 4590237-3 (Version None)
Quarter: 2005Q1

REPORT INFORMATION
  Report Type: 
  Country: None (occurrence: None)
  Receive Date: 20050224
  Receipt Date: 20050214
  Transmission Date: 20050727
  Serious: Yes (Hospitalization)
  Sender: FDA-Public Use
  Company Number: 200510516JP

PATIENT
  Age: 41 Year
  Sex: Female

DRUGS (3)
  1. KETEK [Suspect]
     Indication: UPPER RESPIRATORY TRACT INFLAMMATION
     Route: 048
     Dates: start: 20041227, end: 20050101
  2. TALION [Concomitant]
     Dates: start: 20041227, end: 20050110
  3. PL GRAN. [Concomitant]
     Route: 048
     Dates: start: 20041227, end: 20050106

REACTIONS (2)
  - CONVULSION [None]
  - LOSS OF CONSCIOUSNESS [None]
